FAERS Safety Report 25580063 (Version 2)
Quarter: 2025Q3

REPORT INFORMATION
  Report Type: Spontaneous
  Country: US (occurrence: US)
  Receive Date: 20250718
  Receipt Date: 20250718
  Transmission Date: 20251021
  Serious: No
  Sender: NOVO NORDISK
  Company Number: US-NOVOPROD-1440609

PATIENT
  Age: 32 Year

DRUGS (3)
  1. WEGOVY [Suspect]
     Active Substance: SEMAGLUTIDE
     Indication: Weight control
     Dosage: 0.5 MG, QW
     Route: 058
     Dates: start: 20241114
  2. WEGOVY [Suspect]
     Active Substance: SEMAGLUTIDE
     Dosage: 0.5 MG, QW
  3. WEGOVY [Suspect]
     Active Substance: SEMAGLUTIDE
     Indication: Weight control
     Route: 058

REACTIONS (5)
  - Drug intolerance [Unknown]
  - Injection site pain [Recovered/Resolved]
  - Wrong technique in product usage process [Unknown]
  - Off label use [Unknown]
  - Device leakage [Unknown]

NARRATIVE: CASE EVENT DATE: 20250222
